FAERS Safety Report 10907447 (Version 3)
Quarter: 2015Q2

REPORT INFORMATION
  Report Type: Spontaneous
  Country: US (occurrence: US)
  Receive Date: 20150312
  Receipt Date: 20150417
  Transmission Date: 20150821
  Serious: Yes (Other)
  Sender: FDA-Public Use
  Company Number: US-SA-2015SA028801

PATIENT
  Age: 89 Year
  Sex: Female

DRUGS (4)
  1. LANTUS [Suspect]
     Active Substance: INSULIN GLARGINE
     Indication: TYPE 2 DIABETES MELLITUS
     Dosage: DOSE: 10-15 UNITS
     Route: 065
     Dates: start: 1999
  2. TOPAL [Concomitant]
     Active Substance: ALGINIC ACID\ALUMINUM HYDROXIDE\MAGNESIUM CARBONATE
  3. IBUPROFEN. [Concomitant]
     Active Substance: IBUPROFEN
     Indication: PAIN
  4. PLAVIX [Concomitant]
     Active Substance: CLOPIDOGREL BISULFATE

REACTIONS (2)
  - Macular degeneration [Unknown]
  - Visual acuity reduced [Unknown]

NARRATIVE: CASE EVENT DATE: 2013
